FAERS Safety Report 6721820-4 (Version None)
Quarter: 2010Q2

REPORT INFORMATION
  Report Type: 
  Country: None (occurrence: None)
  Receive Date: 20100510
  Receipt Date: 20091209
  Transmission Date: 20101027
  Serious: Yes (Life-Threatening)
  Sender: FDA-Public Use
  Company Number: LEO-2010-00321

PATIENT
  Age: 77 Year
  Sex: Female
  Weight: 70 kg

DRUGS (1)
  1. INNOHEP [Suspect]
     Indication: ATRIAL FIBRILLATION
     Dosage: SUBCUTANEOUS
     Route: 058
     Dates: start: 20060818, end: 20060919

REACTIONS (10)
  - ABDOMINAL WALL HAEMATOMA [None]
  - ANAEMIA [None]
  - ANGINA PECTORIS [None]
  - BRADYCARDIA [None]
  - ELECTROCARDIOGRAM ST SEGMENT DEPRESSION [None]
  - HAEMATOMA [None]
  - OFF LABEL USE [None]
  - PAIN IN EXTREMITY [None]
  - PROTHROMBIN TIME PROLONGED [None]
  - RENAL FAILURE [None]
